FAERS Safety Report 22526895 (Version 1)
Quarter: 2023Q2

REPORT INFORMATION
  Report Type: Spontaneous
  Country: GB (occurrence: GB)
  Receive Date: 20230606
  Receipt Date: 20230606
  Transmission Date: 20230722
  Serious: Yes (Other)
  Sender: FDA-Public Use
  Company Number: None

PATIENT
  Sex: Male

DRUGS (17)
  1. DOXYCYCLINE [Suspect]
     Active Substance: DOXYCYCLINE
     Indication: Product used for unknown indication
     Dosage: 100 MILLIGRAM, BID (TWICE A DAY IN THE MORNING)
     Route: 065
  2. BISOPROLOL [Concomitant]
     Active Substance: BISOPROLOL
     Dosage: 1 DOSAGE FORM, QD (ONE TO BE TAKEN IN THE MORNING)
     Route: 065
  3. CARBAMAZEPINE [Concomitant]
     Active Substance: CARBAMAZEPINE
     Dosage: 200 MILLIGRAM, QD (200 MG EACH DAY IN THE MORNING)
     Route: 065
  4. CHOLECALCIFEROL [Concomitant]
     Active Substance: CHOLECALCIFEROL
     Dosage: QD (800 UNITEACH DAY IN THE MORNING)
     Route: 065
  5. FEXOFENADINE [Concomitant]
     Active Substance: FEXOFENADINE HYDROCHLORIDE
     Dosage: 120 MILLIGRAM, QD (120 MG EACH DAY IN THE MORNING)
     Route: 065
  6. HYDROCORTISONE [Concomitant]
     Active Substance: HYDROCORTISONE
     Dosage: 1 APPLICATION TWICE A DAY IN THE MORNING AND AT NIGHT PRN BD
     Route: 065
  7. KETOCONAZOLE [Concomitant]
     Active Substance: KETOCONAZOLE
     Dosage: APPLY TWICE EACH WEEK AS DIRECTED 100 ML
     Route: 065
  8. LACTULOSE [Concomitant]
     Active Substance: LACTULOSE
     Dosage: THREE 5ML SPOONFULS TO BE TAKEN TWICE A DAY 1000 ML
     Route: 065
  9. ACETAMINOPHEN [Concomitant]
     Active Substance: ACETAMINOPHEN
     Dosage: 1000 MILLIGRAM, QID (1000 MG FOUR TIMES A DAY)
     Route: 065
  10. TAMSULOSIN [Concomitant]
     Active Substance: TAMSULOSIN
     Dosage: 400 MICROGRAM, QD (400 MICROGRAM EACH DAY IN THE MORNING)
     Route: 065
  11. THIAMINE [Concomitant]
     Active Substance: THIAMINE
     Dosage: 100 MILLIGRAM, TID (100 MG THREE TIMES A DAY)
     Route: 065
  12. CARBAMAZEPINE [Concomitant]
     Active Substance: CARBAMAZEPINE
     Dosage: 400 MILLIGRAM, QD (400 MG EVERY EVENING AT 8PM)
     Route: 065
  13. EPILIM [Concomitant]
     Active Substance: VALPROATE SODIUM
     Dosage: 2 DOSAGE FORM, BID (TWO TO BE TAKEN TWICE A DAY (MORNING AND NIGHT) 112 TABLET)
     Route: 065
  14. SENNA [Concomitant]
     Active Substance: SENNA LEAF\SENNOSIDES\SENNOSIDES A AND B
     Dosage: 2 DOSAGE FORM, QD (TWO TO BE TAKEN AT NIGHT)
     Route: 065
  15. TEGRETOL [Concomitant]
     Active Substance: CARBAMAZEPINE
     Dosage: ONE AM WITH TWO (400MG) PM
     Route: 065
  16. DERMOL [Concomitant]
     Active Substance: BENZALKONIUM CHLORIDE\CHLORHEXIDINE HYDROCHLORIDE\ISOPROPYL MYRISTATE\PARAFFIN
     Dosage: 500 LOTION APPLY TO SKIN OR USE AS A SOAP SUBSTITUTE 500 ML
     Route: 065
  17. COVID-19 vaccine [Concomitant]
     Dosage: SPIKEVAX 0 (ZERO)/O (OMICRON) 0.1MG/ML DISPERSION FOR INJECTION MULTIDOSE VIALS (MODERNA, INC)
     Route: 065
     Dates: start: 20221007

REACTIONS (1)
  - Liver injury [Recovering/Resolving]
